FAERS Safety Report 6038492-7 (Version None)
Quarter: 2009Q1

REPORT INFORMATION
  Report Type: 
  Country: None (occurrence: None)
  Receive Date: 20090115
  Receipt Date: 20080807
  Transmission Date: 20090719
  Serious: No
  Sender: FDA-Public Use
  Company Number: US-KINGPHARMUSA00001-K200800954

PATIENT
  Age: 4 Year
  Sex: Male
  Weight: 18.141 kg

DRUGS (2)
  1. EPIPEN JR. [Suspect]
     Indication: ALLERGY TO ARTHROPOD STING
     Dosage: .15 MG, SINGLE
     Route: 030
     Dates: start: 20080807, end: 20080807
  2. LORATADINE [Concomitant]
     Indication: HYPERSENSITIVITY
     Dosage: 1 DF, QD
     Route: 048

REACTIONS (1)
  - DRUG ADMINISTRATION ERROR [None]
